FAERS Safety Report 8585177-9 (Version None)
Quarter: 2012Q3

REPORT INFORMATION
  Report Type: 
  Country: None (occurrence: None)
  Receive Date: 20120810
  Receipt Date: 20120801
  Transmission Date: 20120928
  Serious: Yes (Other)
  Sender: FDA-Public Use
  Company Number: US-CELGENEUS-163-20785-12072388

PATIENT
  Sex: Male

DRUGS (6)
  1. MULTI-VITAMINS [Concomitant]
     Route: 065
  2. CEFDINIR [Concomitant]
     Route: 065
  3. THALOMID [Suspect]
     Dosage: 50 MILLIGRAM
     Route: 048
     Dates: start: 20120703, end: 20120101
  4. CHERATUSSIN AC [Concomitant]
     Route: 065
  5. ZOLPIDEM TARTRATE [Concomitant]
     Route: 065
  6. LASIX [Concomitant]
     Route: 065

REACTIONS (7)
  - HEADACHE [None]
  - PARALYSIS [None]
  - ANXIETY [None]
  - BONE PAIN [None]
  - ARTHRALGIA [None]
  - OEDEMA PERIPHERAL [None]
  - PAIN IN EXTREMITY [None]
